FAERS Safety Report 5015910-4 (Version None)
Quarter: 2006Q2

REPORT INFORMATION
  Report Type: 
  Country: None (occurrence: None)
  Receive Date: 20060525
  Receipt Date: 20060510
  Transmission Date: 20061013
  Serious: Yes (Death, Other)
  Sender: FDA-Public Use
  Company Number: AT200605001149

PATIENT
  Age: 62 Year
  Sex: Male

DRUGS (9)
  1. ZYPREXA [Suspect]
     Indication: ALCOHOL WITHDRAWAL SYNDROME
     Dosage: SEE IMAGE
     Route: 048
     Dates: start: 20060426, end: 20060427
  2. ZYPREXA [Suspect]
     Indication: ALCOHOL WITHDRAWAL SYNDROME
     Dosage: SEE IMAGE
     Route: 048
     Dates: start: 20060427, end: 20060427
  3. FOLAN (FOLIC ACID) [Concomitant]
  4. NEUROBION FORTE (CYANOCOBALAMIN, PYRIDOXINE HYDROCHLORIDE, THIAMINE DI [Concomitant]
  5. PANTOPRAZOLE SODIUM [Concomitant]
  6. CAMPRAL /GFR/ (ACAMPROSATE CALCIUM) [Concomitant]
  7. KANAKION (PHYTOMENADIONE) [Concomitant]
  8. ANXIOLIT /AUT/ (OXAZEPAM) [Concomitant]
  9. TRESLEEN (SERTRALINE) [Suspect]

REACTIONS (4)
  - ALCOHOL WITHDRAWAL SYNDROME [None]
  - DYSPNOEA [None]
  - PLATELET DISORDER [None]
  - SOMNOLENCE [None]
